FAERS Safety Report 8530050 (Version 4)
Quarter: 2014Q2

REPORT INFORMATION
  Report Type: Spontaneous
  Country: US (occurrence: US)
  Receive Date: 20120425
  Receipt Date: 20140521
  Transmission Date: 20141212
  Serious: Yes (Hospitalization)
  Sender: FDA-Public Use
  Company Number: US-GLAXOSMITHKLINE-A0934412A

PATIENT
  Sex: Male

DRUGS (1)
  1. ROSIGLITAZONE MALEATE [Suspect]
     Indication: DIABETES MELLITUS
     Route: 048
     Dates: start: 2003, end: 20101012

REACTIONS (5)
  - Myocardial infarction [Unknown]
  - Amnesia [Unknown]
  - Arterial occlusive disease [Unknown]
  - Surgery [Unknown]
  - Weight decreased [Unknown]
